FAERS Safety Report 6676498-5 (Version None)
Quarter: 2010Q2

REPORT INFORMATION
  Report Type: 
  Country: None (occurrence: None)
  Receive Date: 20100412
  Receipt Date: 20100408
  Transmission Date: 20101027
  Serious: Yes (Death)
  Sender: FDA-Public Use
  Company Number: PHHY2010CA05528

PATIENT
  Sex: Male

DRUGS (1)
  1. EXJADE [Suspect]
     Indication: LEUKAEMIA
     Dosage: 1000 MG, QD
     Route: 048
     Dates: start: 20100123

REACTIONS (2)
  - DIARRHOEA [None]
  - PNEUMONIA [None]
